FAERS Safety Report 5999947-4 (Version None)
Quarter: 2008Q4

REPORT INFORMATION
  Report Type: 
  Country: None (occurrence: None)
  Receive Date: 20081215
  Receipt Date: 20081205
  Transmission Date: 20090506
  Serious: Yes (Other)
  Sender: FDA-Public Use
  Company Number: PHHY2008BR30966

PATIENT
  Sex: Female

DRUGS (5)
  1. TEGRETOL [Suspect]
     Indication: INSOMNIA
     Dosage: 200 MG, TID
     Route: 048
     Dates: start: 20081125
  2. TEGRETOL [Suspect]
     Indication: AGGRESSION
  3. AKINETON [Concomitant]
     Dosage: 1 TAB DAILY
     Route: 048
     Dates: start: 20081125
  4. HALDOL [Concomitant]
     Dosage: 5 MG, QD
     Route: 048
     Dates: start: 20081125
  5. SIBUTRAMINE HYDROCHLORIDE [Concomitant]
     Dosage: 1 DF, BID
     Route: 048

REACTIONS (6)
  - ARTHRALGIA [None]
  - BLISTER [None]
  - BURNING SENSATION [None]
  - JOINT SWELLING [None]
  - MEASLES [None]
  - MENSTRUAL DISORDER [None]
